FAERS Safety Report 17588525 (Version 4)
Quarter: 2020Q2

REPORT INFORMATION
  Report Type: Report from Study
  Country: None (occurrence: DE)
  Receive Date: 20200327
  Receipt Date: 20200417
  Transmission Date: 20200713
  Serious: Yes (Other)
  Sender: FDA-Public Use
  Company Number: DE-ABBVIE-20K-062-3333740-00

PATIENT
  Age: 71 Year
  Sex: Male
  Weight: 94 kg

DRUGS (6)
  1. VENETOCLAX. [Suspect]
     Active Substance: VENETOCLAX
     Route: 048
     Dates: start: 20200305, end: 20200311
  2. VENETOCLAX. [Suspect]
     Active Substance: VENETOCLAX
     Route: 048
     Dates: start: 20200212, end: 20200217
  3. VENETOCLAX. [Suspect]
     Active Substance: VENETOCLAX
     Indication: CHRONIC LYMPHOCYTIC LEUKAEMIA
     Route: 048
     Dates: start: 20200206, end: 20200211
  4. VENETOCLAX. [Suspect]
     Active Substance: VENETOCLAX
     Route: 048
     Dates: start: 20200318
  5. VENETOCLAX. [Suspect]
     Active Substance: VENETOCLAX
     Route: 048
     Dates: start: 20200218, end: 20200225
  6. VENETOCLAX. [Suspect]
     Active Substance: VENETOCLAX
     Route: 048
     Dates: start: 20200226, end: 20200303

REACTIONS (8)
  - Tumour lysis syndrome [Recovered/Resolved]
  - Blood bilirubin increased [Unknown]
  - Blood uric acid abnormal [Unknown]
  - Blood potassium increased [Recovered/Resolved]
  - Blood creatinine increased [Recovered/Resolved]
  - Blood uric acid increased [Unknown]
  - Tumour lysis syndrome [Not Recovered/Not Resolved]
  - Lymphocyte count increased [Unknown]

NARRATIVE: CASE EVENT DATE: 20200206
